FAERS Safety Report 8353256-7 (Version None)
Quarter: 2012Q2

REPORT INFORMATION
  Report Type: 
  Country: None (occurrence: None)
  Receive Date: 20120511
  Receipt Date: 20120430
  Transmission Date: 20120825
  Serious: Yes (Hospitalization, Other)
  Sender: FDA-Public Use
  Company Number: US-BAYER-201042147NA

PATIENT
  Age: 52 Year
  Sex: Female
  Weight: 65.76 kg

DRUGS (22)
  1. OXYCODONE HCL [Concomitant]
  2. YAZ [Suspect]
     Indication: ABDOMINAL DISTENSION
  3. CELEXA [Concomitant]
  4. TRAZODONE HCL [Concomitant]
  5. CELEBREX [Concomitant]
  6. COLACE [Concomitant]
  7. YAZ [Suspect]
  8. NYSTATIN [Concomitant]
  9. LISINOPRIL [Concomitant]
  10. LIDOCAINE [Concomitant]
  11. BACLOFEN [Concomitant]
  12. YAZ [Suspect]
     Indication: VAGINAL HAEMORRHAGE
     Dosage: UNK UNK, UNK
     Route: 048
     Dates: start: 20080222, end: 20081224
  13. YAZ [Suspect]
     Indication: UTERINE ENLARGEMENT
  14. PROTONIX [Concomitant]
  15. POTASSIUM CHLORIDE [Concomitant]
  16. VANCOMYCIN [Concomitant]
  17. ZOSYN [Concomitant]
  18. ZOFRAN [Concomitant]
  19. PERCOCET [Concomitant]
  20. KEPPRA [Concomitant]
  21. NEXIUM [Concomitant]
  22. URSODIOL [Concomitant]

REACTIONS (8)
  - ENTEROCOCCAL SEPSIS [None]
  - PULMONARY EMBOLISM [None]
  - DEEP VEIN THROMBOSIS [None]
  - CHOLECYSTITIS [None]
  - SUBDURAL HAEMATOMA [None]
  - ATELECTASIS [None]
  - CEREBRAL INFARCTION [None]
  - HAEMORRHAGE INTRACRANIAL [None]
